FAERS Safety Report 25699775 (Version 1)
Quarter: 2025Q3

REPORT INFORMATION
  Report Type: Spontaneous
  Country: US (occurrence: None)
  Receive Date: 20250818
  Receipt Date: 20250818
  Transmission Date: 20251021
  Serious: Yes (Other)
  Sender: FDA-CTU
  Company Number: None

PATIENT
  Age: 59 Year
  Sex: Female
  Weight: 100.8 kg

DRUGS (3)
  1. DULOXETINE [Suspect]
     Active Substance: DULOXETINE
     Indication: Arthralgia
     Dosage: OTHER QUANTITY : 1 CAPSULE(S);?FREQUENCY : DAILY;?
     Route: 048
     Dates: start: 20250204, end: 20250207
  2. TEA [Suspect]
     Active Substance: TEA LEAF
  3. TYLENOL [Concomitant]
     Active Substance: ACETAMINOPHEN

REACTIONS (7)
  - Nausea [None]
  - Abdominal discomfort [None]
  - Abdominal pain upper [None]
  - Initial insomnia [None]
  - Dehydration [None]
  - Diarrhoea [None]
  - Drug interaction [None]

NARRATIVE: CASE EVENT DATE: 20250211
